FAERS Safety Report 8602260-X (Version None)
Quarter: 2012Q3

REPORT INFORMATION
  Report Type: 
  Country: None (occurrence: None)
  Receive Date: 20120817
  Receipt Date: 20120809
  Transmission Date: 20120928
  Serious: Yes (Hospitalization)
  Sender: FDA-Public Use
  Company Number: US-ABBOTT-12P-163-0968360-00

PATIENT
  Sex: Female
  Weight: 89.892 kg

DRUGS (8)
  1. HUMIRA [Suspect]
     Indication: CROHN'S DISEASE
     Dates: start: 20120401
  2. HUMIRA [Suspect]
     Dates: start: 20120806
  3. BENICAR [Concomitant]
     Indication: HYPERTENSION
  4. LUNESTA [Concomitant]
     Indication: INSOMNIA
  5. LIPITOR [Concomitant]
     Indication: BLOOD CHOLESTEROL INCREASED
  6. LEVOTHYROXINE SODIUM [Concomitant]
     Indication: THYROIDECTOMY
  7. LEXAPRO [Concomitant]
     Indication: ANXIETY
  8. HUMIRA [Suspect]
     Dosage: ONCE
     Dates: start: 20120730, end: 20120730

REACTIONS (6)
  - INTESTINAL STENOSIS [None]
  - CROHN'S DISEASE [None]
  - VOMITING [None]
  - PAIN [None]
  - DIARRHOEA [None]
  - DEHYDRATION [None]
